FAERS Safety Report 15384225 (Version 2)
Quarter: 2018Q4

REPORT INFORMATION
  Report Type: Report from Study
  Country: CA (occurrence: CA)
  Receive Date: 20180914
  Receipt Date: 20181004
  Transmission Date: 20190204
  Serious: Yes (Other)
  Sender: FDA-Public Use
  Company Number: CA-ROCHE-1942017

PATIENT
  Age: 74 Year
  Sex: Female

DRUGS (11)
  1. METOPROLOL. [Concomitant]
     Active Substance: METOPROLOL
  2. METAMUCIL [Concomitant]
     Active Substance: PLANTAGO SEED
  3. PREDNISONE. [Concomitant]
     Active Substance: PREDNISONE
  4. ACTEMRA [Suspect]
     Active Substance: TOCILIZUMAB
     Indication: RHEUMATOID ARTHRITIS
     Route: 042
     Dates: start: 20170509, end: 20180904
  5. INDAPAMIDE. [Concomitant]
     Active Substance: INDAPAMIDE
  6. FOLIC ACID. [Concomitant]
     Active Substance: FOLIC ACID
  7. PANTOPRAZOLE [Concomitant]
     Active Substance: PANTOPRAZOLE
  8. MEDROXYPROGESTERONE [Concomitant]
     Active Substance: MEDROXYPROGESTERONE
  9. DICLOFENAC [Concomitant]
     Active Substance: DICLOFENAC
  10. IRBESARTAN. [Concomitant]
     Active Substance: IRBESARTAN
  11. AMLODIPINE [Concomitant]
     Active Substance: AMLODIPINE BESYLATE

REACTIONS (9)
  - Rash [Recovered/Resolved]
  - Haemorrhage urinary tract [Unknown]
  - Cystitis [Unknown]
  - Peripheral swelling [Recovering/Resolving]
  - Skin ulcer [Not Recovered/Not Resolved]
  - Urinary tract infection [Unknown]
  - Neuralgia [Not Recovered/Not Resolved]
  - Headache [Recovered/Resolved]
  - Fatigue [Not Recovered/Not Resolved]

NARRATIVE: CASE EVENT DATE: 20170509
